FAERS Safety Report 8203730-9 (Version None)
Quarter: 2012Q1

REPORT INFORMATION
  Report Type: 
  Country: None (occurrence: None)
  Receive Date: 20120308
  Receipt Date: 20120227
  Transmission Date: 20120608
  Serious: Yes (Other)
  Sender: FDA-Public Use
  Company Number: TCI2012A00428

PATIENT
  Age: 60 Month
  Sex: Male

DRUGS (2)
  1. ACTOS [Suspect]
     Indication: DIABETES MELLITUS
     Dosage: 15 MG (15 MG, 1 D)
     Route: 048
     Dates: start: 20110303
  2. VECTIBIX [Suspect]
     Indication: COLORECTAL CANCER
     Dosage: 500 MG (500 MG, 1 IN 2 WK)
     Route: 041
     Dates: start: 20120117

REACTIONS (2)
  - HAEMATURIA [None]
  - CALCULUS BLADDER [None]
